FAERS Safety Report 6063233-7 (Version None)
Quarter: 2009Q1

REPORT INFORMATION
  Report Type: 
  Country: None (occurrence: None)
  Receive Date: 20090203
  Receipt Date: 20090129
  Transmission Date: 20090719
  Serious: Yes (Death, Life-Threatening, Hospitalization, Disabling, Other)
  Sender: FDA-Public Use
  Company Number: CA-CELGENEUS-028-C5013-08121755

PATIENT
  Sex: Male

DRUGS (2)
  1. CC-5013 [Suspect]
     Indication: MULTIPLE MYELOMA
     Route: 048
     Dates: start: 20071005, end: 20080730
  2. DEXAMETHASONE [Suspect]
     Indication: MULTIPLE MYELOMA
     Route: 048
     Dates: start: 20071005, end: 20080730

REACTIONS (3)
  - CLOSTRIDIUM DIFFICILE COLITIS [None]
  - DISEASE PROGRESSION [None]
  - RENAL FAILURE [None]
